FAERS Safety Report 7509770-7 (Version None)
Quarter: 2011Q2

REPORT INFORMATION
  Report Type: 
  Country: None (occurrence: None)
  Receive Date: 20110527
  Receipt Date: 20110520
  Transmission Date: 20111010
  Serious: Yes (Hospitalization)
  Sender: FDA-Public Use
  Company Number: US-ABBOTT-11P-163-0728067-00

PATIENT
  Sex: Male
  Weight: 107.14 kg

DRUGS (11)
  1. DEPAKOTE [Suspect]
     Indication: BIPOLAR DISORDER
     Dates: start: 20050101
  2. DEPAKOTE [Suspect]
     Dates: start: 20110501
  3. RISPERDAL [Concomitant]
     Indication: SCHIZOAFFECTIVE DISORDER
  4. NEXIUM [Concomitant]
     Indication: PRODUCT USED FOR UNKNOWN INDICATION
  5. LAMICTAL [Concomitant]
     Indication: SCHIZOAFFECTIVE DISORDER
  6. DEPAKOTE [Suspect]
     Dates: end: 20110501
  7. DEPAKOTE [Suspect]
  8. DEPAKOTE [Suspect]
  9. NORVASC [Concomitant]
     Indication: HYPERTENSION
     Route: 048
  10. KLONOPIN [Concomitant]
     Indication: SCHIZOAFFECTIVE DISORDER
  11. TOPROL-XL [Concomitant]
     Indication: HYPERTENSION

REACTIONS (15)
  - STRESS [None]
  - MUSCULAR WEAKNESS [None]
  - NEUROPATHY PERIPHERAL [None]
  - PARAESTHESIA [None]
  - MYALGIA [None]
  - ANXIETY [None]
  - DYSPNOEA EXERTIONAL [None]
  - NIGHT SWEATS [None]
  - HYPERTHYROIDISM [None]
  - WEIGHT INCREASED [None]
  - PSORIATIC ARTHROPATHY [None]
  - BASEDOW'S DISEASE [None]
  - MYOPATHY TOXIC [None]
  - CHILLS [None]
  - PYREXIA [None]
